FAERS Safety Report 15015601 (Version 1)
Quarter: 2018Q2

REPORT INFORMATION
  Report Type: Spontaneous
  Country: US (occurrence: US)
  Receive Date: 20180530
  Receipt Date: 20180530
  Transmission Date: 20180711
  Serious: Yes (Life-Threatening, Hospitalization, Other)
  Sender: FDA-Public Use
  Company Number: None

PATIENT
  Age: 78 Year

DRUGS (4)
  1. TIZANIDINE. [Suspect]
     Active Substance: TIZANIDINE
     Route: 048
  2. RAMIPRIL. [Concomitant]
     Active Substance: RAMIPRIL
  3. NORTRIPTYLINE [Concomitant]
     Active Substance: NORTRIPTYLINE
  4. LIDOCAINE PATCH [Concomitant]
     Active Substance: LIDOCAINE

REACTIONS (6)
  - Dyspnoea [None]
  - Asthenia [None]
  - Dizziness [None]
  - Hyperkalaemia [None]
  - Atrioventricular block complete [None]
  - Heart rate decreased [None]

NARRATIVE: CASE EVENT DATE: 20171102
